FAERS Safety Report 24442042 (Version 1)
Quarter: 2024Q4

REPORT INFORMATION
  Report Type: Spontaneous
  Country: US (occurrence: US)
  Receive Date: 20241016
  Receipt Date: 20241016
  Transmission Date: 20250114
  Serious: No
  Sender: BEIGENE
  Company Number: US-BEIGENE-BGN-2024-016259

PATIENT

DRUGS (1)
  1. BRUKINSA [Suspect]
     Active Substance: ZANUBRUTINIB
     Indication: Waldenstrom^s macroglobulinaemia
     Dosage: 320 MILLIGRAM, DAILY
     Route: 048

REACTIONS (1)
  - Rash [Recovering/Resolving]
